FAERS Safety Report 24745526 (Version 2)
Quarter: 2025Q1

REPORT INFORMATION
  Report Type: Spontaneous
  Country: JP (occurrence: JP)
  Receive Date: 20241218
  Receipt Date: 20250110
  Transmission Date: 20250408
  Serious: Yes (Hospitalization)
  Sender: MALLINCKRODT
  Company Number: JP-MALLINCKRODT-MNK202407545

PATIENT
  Age: 49 Year
  Sex: Male

DRUGS (6)
  1. NITRIC OXIDE [Suspect]
     Active Substance: NITRIC OXIDE
     Indication: Pulmonary hypertension
     Route: 055
     Dates: start: 20240718, end: 20240801
  2. NITRIC OXIDE [Suspect]
     Active Substance: NITRIC OXIDE
     Route: 055
     Dates: start: 2024
  3. ROCURONIUM [Concomitant]
     Active Substance: ROCURONIUM BROMIDE
  4. FENTANYL [Concomitant]
     Active Substance: FENTANYL
  5. MIDAZOLAM [Concomitant]
     Active Substance: MIDAZOLAM
  6. PROPOFOL [Concomitant]
     Active Substance: PROPOFOL

REACTIONS (3)
  - Traumatic lung injury [Unknown]
  - Hypoventilation [Recovering/Resolving]
  - Pulmonary oedema [Recovered/Resolved]

NARRATIVE: CASE EVENT DATE: 20240101
